FAERS Safety Report 21370858 (Version 2)
Quarter: 2022Q4

REPORT INFORMATION
  Report Type: Report from Study
  Country: PL (occurrence: PL)
  Receive Date: 20220923
  Receipt Date: 20221124
  Transmission Date: 20230113
  Serious: Yes (Other)
  Sender: FDA-Public Use
  Company Number: PL-SHIRE-PL201900888

PATIENT
  Sex: Male

DRUGS (5)
  1. IDURSULFASE [Suspect]
     Active Substance: IDURSULFASE
     Indication: Mucopolysaccharidosis II
     Dosage: UNK
     Route: 042
     Dates: start: 20090911
  2. IDURSULFASE [Suspect]
     Active Substance: IDURSULFASE
     Dosage: UNK, 1/WEEK
     Route: 042
     Dates: start: 20100923, end: 20110601
  3. GENISTEIN [Concomitant]
     Active Substance: GENISTEIN
     Indication: Cardiovascular disorder
     Dosage: UNK
     Route: 065
     Dates: start: 20080312
  4. DIAZEPAM [Concomitant]
     Active Substance: DIAZEPAM
     Indication: Nervous system disorder
     Dosage: UNK
     Route: 065
     Dates: start: 20090911
  5. METAMIZOLUM NATRICUM [Concomitant]
     Indication: Pain
     Dosage: UNK
     Route: 042
     Dates: start: 20100923, end: 20100929

REACTIONS (2)
  - Tricuspid valve incompetence [Not Recovered/Not Resolved]
  - Body height below normal [Unknown]

NARRATIVE: CASE EVENT DATE: 20100929
